FAERS Safety Report 21069056 (Version 1)
Quarter: 2022Q3

REPORT INFORMATION
  Report Type: Spontaneous
  Country: CN (occurrence: None)
  Receive Date: 20220712
  Receipt Date: 20220712
  Transmission Date: 20221027
  Serious: Yes (Hospitalization)
  Sender: FDA-Public Use
  Company Number: 2022A247848

PATIENT
  Age: 64 Year
  Sex: Male
  Weight: 60.5 kg

DRUGS (1)
  1. DAPAGLIFLOZIN [Suspect]
     Active Substance: DAPAGLIFLOZIN
     Indication: Hyperglycaemia
     Route: 048
     Dates: start: 20220613, end: 20220615

REACTIONS (4)
  - Ketosis [Recovering/Resolving]
  - Cerebral artery occlusion [Unknown]
  - Cerebral artery stenosis [Unknown]
  - Cerebral infarction [Unknown]

NARRATIVE: CASE EVENT DATE: 20220615
